FAERS Safety Report 15592415 (Version 3)
Quarter: 2019Q1

REPORT INFORMATION
  Report Type: Spontaneous
  Country: US (occurrence: US)
  Receive Date: 20181106
  Receipt Date: 20190110
  Transmission Date: 20190417
  Serious: No
  Sender: FDA-Public Use
  Company Number: US-ARALEZ PHARMACEUTICALS R+D INC.-2018-ARA-002742

PATIENT
  Sex: Female

DRUGS (9)
  1. TEMAZEPAM. [Concomitant]
     Active Substance: TEMAZEPAM
  2. TRAMADOL HCL [Concomitant]
     Active Substance: TRAMADOL HYDROCHLORIDE
     Indication: PRODUCT USED FOR UNKNOWN INDICATION
     Dosage: UNK
  3. AMLODIPINE BESYLATE. [Concomitant]
     Active Substance: AMLODIPINE BESYLATE
  4. B COMPLEX                          /00322001/ [Concomitant]
     Active Substance: CALCIUM PANTOTHENATE\CYANOCOBALAMIN\NIACINAMIDE\PYRIDOXINE HYDROCHLORIDE\RIBOFLAVIN\THIAMINE HYDROCHLORIDE
  5. TAGRISSO [Suspect]
     Active Substance: OSIMERTINIB
     Indication: LUNG NEOPLASM MALIGNANT
     Dosage: 80 MG DAILY
     Route: 048
  6. FOLIC ACID. [Concomitant]
     Active Substance: FOLIC ACID
  7. RISPERDAL [Concomitant]
     Active Substance: RISPERIDONE
  8. METOPROLOL SUCCINATE. [Suspect]
     Active Substance: METOPROLOL SUCCINATE
     Indication: PRODUCT USED FOR UNKNOWN INDICATION
     Dosage: UNK
     Dates: start: 201803
  9. TRAZODONE HYDROCHLORIDE. [Concomitant]
     Active Substance: TRAZODONE HYDROCHLORIDE

REACTIONS (4)
  - Onychoclasis [Unknown]
  - Decreased appetite [Not Recovered/Not Resolved]
  - Constipation [Unknown]
  - Weight decreased [Not Recovered/Not Resolved]
